FAERS Safety Report 8247468-0 (Version None)
Quarter: 2012Q1

REPORT INFORMATION
  Report Type: 
  Country: None (occurrence: None)
  Receive Date: 20120327
  Receipt Date: 20120312
  Transmission Date: 20120608
  Serious: Yes (Hospitalization, Disabling, Other)
  Sender: FDA-Public Use
  Company Number: 2012-00464

PATIENT
  Age: 46 Year
  Sex: Male

DRUGS (2)
  1. SIMVASTATIN [Suspect]
     Indication: HYPERCHOLESTEROLAEMIA
     Dosage: (20 MG,),ORAL
     Route: 048
     Dates: start: 20120208, end: 20120227
  2. FLUCLOXACILLIN [Concomitant]

REACTIONS (4)
  - FATIGUE [None]
  - DRY MOUTH [None]
  - DIABETES MELLITUS [None]
  - WEIGHT DECREASED [None]
